FAERS Safety Report 24284027 (Version 2)
Quarter: 2024Q3

REPORT INFORMATION
  Report Type: Spontaneous
  Country: ES (occurrence: ES)
  Receive Date: 20240905
  Receipt Date: 20240916
  Transmission Date: 20241016
  Serious: Yes (Disabling)
  Sender: BIOGEN
  Company Number: ES-BIOGEN-2024BI01280128

PATIENT
  Age: 32 Year
  Sex: Female

DRUGS (2)
  1. TOFERSEN [Suspect]
     Active Substance: TOFERSEN
     Indication: Amyotrophic lateral sclerosis
     Dosage: LAST ADMIN: 25 JUL 2024
     Route: 050
     Dates: start: 20240523
  2. RILUZOLE [Concomitant]
     Active Substance: RILUZOLE
     Indication: Product used for unknown indication
     Route: 050
     Dates: start: 20220501

REACTIONS (1)
  - Optic neuritis [Recovered/Resolved]

NARRATIVE: CASE EVENT DATE: 20240804
